FAERS Safety Report 25186505 (Version 1)
Quarter: 2025Q2

REPORT INFORMATION
  Report Type: Spontaneous
  Country: US (occurrence: US)
  Receive Date: 20250411
  Receipt Date: 20250411
  Transmission Date: 20250716
  Serious: Yes (Death, Other)
  Sender: PROCTER AND GAMBLE
  Company Number: US-PROCTER+GAMBLE-PH25002666

PATIENT
  Age: 35 Year
  Sex: Male

DRUGS (25)
  1. ACETAMINOPHEN [Suspect]
     Active Substance: ACETAMINOPHEN
  2. FENTANYL [Suspect]
     Active Substance: FENTANYL
  3. NORFENTANYL [Suspect]
     Active Substance: NORFENTANYL
  4. DESPROPIONYLFENTANYL [Suspect]
     Active Substance: DESPROPIONYLFENTANYL
  5. HEROIN [Suspect]
     Active Substance: DIAMORPHINE
  6. OXYCODONE [Suspect]
     Active Substance: OXYCODONE
  7. KETAMINE [Suspect]
     Active Substance: KETAMINE
  8. NORKETAMINE [Suspect]
     Active Substance: NORKETAMINE
  9. MIDOMAFETAMINE [Suspect]
     Active Substance: MIDOMAFETAMINE
  10. TENAMFETAMINE [Suspect]
     Active Substance: TENAMFETAMINE
  11. MDE [Suspect]
     Active Substance: MDE
  12. METHAMPHETAMINE [Suspect]
     Active Substance: METHAMPHETAMINE
  13. AMPHETAMINE [Suspect]
     Active Substance: AMPHETAMINE
  14. ALPRAZOLAM [Suspect]
     Active Substance: ALPRAZOLAM
  15. 7-AMINOCLONAZEPAM [Suspect]
     Active Substance: 7-AMINOCLONAZEPAM
  16. CETIRIZINE [Suspect]
     Active Substance: CETIRIZINE HYDROCHLORIDE
  17. NALOXONE [Suspect]
     Active Substance: NALOXONE
  18. NOSCAPINE [Suspect]
     Active Substance: NOSCAPINE
  19. LYSERGIDE [Suspect]
     Active Substance: LYSERGIDE
  20. PAPAVERINE [Suspect]
     Active Substance: PAPAVERINE
  21. MORPHINE [Suspect]
     Active Substance: MORPHINE
  22. CODEINE [Suspect]
     Active Substance: CODEINE
  23. 6-ACETYLMORPHINE [Suspect]
     Active Substance: 6-ACETYLMORPHINE
  24. DRONABINOL [Suspect]
     Active Substance: DRONABINOL
  25. 11-NOR-9-CARBOXY-.DELTA-9-TETRAHYDROCANNABINOL [Suspect]
     Active Substance: 11-NOR-9-CARBOXY-.DELTA-9-TETRAHYDROCANNABINOL

REACTIONS (10)
  - Drug abuse [Fatal]
  - Toxicity to various agents [Fatal]
  - Dyspnoea [Fatal]
  - Unresponsive to stimuli [Fatal]
  - Cardiomegaly [Fatal]
  - Pulmonary congestion [Fatal]
  - Pleural effusion [Fatal]
  - Hepatomegaly [Fatal]
  - Splenomegaly [Fatal]
  - Postmortem blood drug level abnormal [Fatal]
